FAERS Safety Report 19465681 (Version 2)
Quarter: 2021Q2

REPORT INFORMATION
  Report Type: Other
  Country: US (occurrence: US)
  Receive Date: 20210626
  Receipt Date: 20210626
  Transmission Date: 20210717
  Serious: No
  Sender: FDA-Public Use
  Company Number: US-NEUROCRINE BIOSCIENCES INC.-2021NBI03091

PATIENT

DRUGS (2)
  1. INGREZZA [Suspect]
     Active Substance: VALBENAZINE
     Dosage: 40 MILLIGRAM, QD
     Route: 048
     Dates: start: 20210428, end: 20210504
  2. INGREZZA [Suspect]
     Active Substance: VALBENAZINE
     Indication: TARDIVE DYSKINESIA
     Dosage: 80 MILLIGRAM, QD
     Route: 048
     Dates: start: 20210505

REACTIONS (8)
  - Stupor [Unknown]
  - Increased appetite [Unknown]
  - Lethargy [Unknown]
  - Drug ineffective [Unknown]
  - Dry mouth [Unknown]
  - Drooling [Unknown]
  - Depressed mood [Unknown]
  - Dizziness [Unknown]

NARRATIVE: CASE EVENT DATE: 2021
